FAERS Safety Report 17601920 (Version 2)
Quarter: 2020Q2

REPORT INFORMATION
  Report Type: Spontaneous
  Country: US (occurrence: US)
  Receive Date: 20200331
  Receipt Date: 20200417
  Transmission Date: 20200713
  Serious: No
  Sender: FDA-Public Use
  Company Number: US-GLAXOSMITHKLINE-US2020AMR055433

PATIENT
  Age: 36 Year
  Sex: Female

DRUGS (1)
  1. BENLYSTA [Suspect]
     Active Substance: BELIMUMAB
     Indication: SYSTEMIC LUPUS ERYTHEMATOSUS
     Dosage: UNK
     Route: 065
     Dates: end: 202002

REACTIONS (4)
  - Wound [Recovered/Resolved]
  - Skin laceration [Recovered/Resolved]
  - Product dose omission [Unknown]
  - Skin infection [Unknown]

NARRATIVE: CASE EVENT DATE: 201912
